FAERS Safety Report 9463870 (Version 2)
Quarter: 2013Q3

REPORT INFORMATION
  Report Type: Spontaneous
  Country: US (occurrence: US)
  Receive Date: 20130819
  Receipt Date: 20130828
  Transmission Date: 20140515
  Serious: Yes (Hospitalization)
  Sender: FDA-Public Use
  Company Number: US-JNJFOC-20130805512

PATIENT
  Sex: Male

DRUGS (8)
  1. DURAGESIC [Suspect]
     Indication: BACK PAIN
     Route: 062
  2. DURAGESIC [Suspect]
     Indication: BACK PAIN
     Route: 062
     Dates: end: 2012
  3. DURAGESIC [Suspect]
     Indication: BACK PAIN
     Route: 062
  4. DURAGESIC [Suspect]
     Indication: BACK PAIN
     Route: 062
  5. DURAGESIC [Suspect]
     Indication: BACK PAIN
     Route: 062
     Dates: start: 2009
  6. VICODIN [Concomitant]
     Indication: BACK PAIN
     Dosage: 5/500 MG
     Route: 048
     Dates: start: 2008
  7. LYRICA [Concomitant]
     Indication: NEUROPATHY PERIPHERAL
     Route: 048
     Dates: start: 2009
  8. IBUPROFEN [Concomitant]
     Indication: PAIN
     Dosage: 2-3 PER DAY
     Route: 048
     Dates: start: 2008

REACTIONS (6)
  - Hospitalisation [Recovered/Resolved]
  - Back pain [Recovered/Resolved]
  - Groin pain [Not Recovered/Not Resolved]
  - Weight increased [Not Recovered/Not Resolved]
  - Product quality issue [Not Recovered/Not Resolved]
  - Calcinosis [Recovered/Resolved]
